FAERS Safety Report 10622791 (Version 1)
Quarter: 2014Q4

REPORT INFORMATION
  Report Type: Spontaneous
  Country: US (occurrence: None)
  Receive Date: 20141202
  Receipt Date: 20141202
  Transmission Date: 20150529
  Serious: Yes (Disabling, Other)
  Sender: FDA-Public Use
  Company Number: None

PATIENT
  Age: 54 Year
  Sex: Female
  Weight: 99.79 kg

DRUGS (5)
  1. HYDROCODONE/APAP [Suspect]
     Active Substance: ACETAMINOPHEN\HYDROCODONE
     Indication: SPINAL PAIN
     Dosage: 6/DAY
     Route: 048
     Dates: start: 20141113, end: 20141201
  2. HYDROCODONE/APAP [Suspect]
     Active Substance: ACETAMINOPHEN\HYDROCODONE
     Indication: MUSCULOSKELETAL PAIN
     Dosage: 6/DAY
     Route: 048
     Dates: start: 20141113, end: 20141201
  3. HYDROCODONE/APAP [Suspect]
     Active Substance: ACETAMINOPHEN\HYDROCODONE
     Indication: SWELLING
     Dosage: 6/DAY
     Route: 048
     Dates: start: 20141113, end: 20141201
  4. HYDROCODONE/APAP [Suspect]
     Active Substance: ACETAMINOPHEN\HYDROCODONE
     Indication: ARTHRALGIA
     Dosage: 6/DAY
     Route: 048
     Dates: start: 20141113, end: 20141201
  5. HYDROCODONE/APAP [Suspect]
     Active Substance: ACETAMINOPHEN\HYDROCODONE
     Indication: PAIN IN EXTREMITY
     Dosage: 6/DAY
     Route: 048
     Dates: start: 20141113, end: 20141201

REACTIONS (10)
  - Abdominal distension [None]
  - Product substitution issue [None]
  - Drug ineffective [None]
  - Depression [None]
  - Pain [None]
  - Abdominal pain upper [None]
  - Burning sensation [None]
  - Pyrexia [None]
  - Chills [None]
  - Spinal pain [None]

NARRATIVE: CASE EVENT DATE: 20141201
